FAERS Safety Report 4769773-2 (Version None)
Quarter: 2005Q3

REPORT INFORMATION
  Report Type: 
  Country: None (occurrence: None)
  Receive Date: 20050915
  Receipt Date: 20050808
  Transmission Date: 20060218
  Serious: Yes (Other)
  Sender: FDA-Public Use
  Company Number: GB-BRISTOL-MYERS SQUIBB COMPANY-13080080

PATIENT
  Sex: Female

DRUGS (5)
  1. ERBITUX [Suspect]
  2. IRINOTECAN HCL [Concomitant]
  3. PREDNISOLONE [Concomitant]
  4. TACROLIMUS [Concomitant]
  5. AMLODIPINE [Concomitant]

REACTIONS (4)
  - ALANINE AMINOTRANSFERASE ABNORMAL [None]
  - BILIARY DILATATION [None]
  - BLOOD ALKALINE PHOSPHATASE INCREASED [None]
  - BLOOD BILIRUBIN INCREASED [None]
